FAERS Safety Report 21442366 (Version 3)
Quarter: 2022Q4

REPORT INFORMATION
  Report Type: Spontaneous
  Country: US (occurrence: US)
  Receive Date: 20221011
  Receipt Date: 20221220
  Transmission Date: 20230112
  Serious: Yes (Hospitalization, Other)
  Sender: FDA-Public Use
  Company Number: US-BEH-2022146012

PATIENT
  Age: 45 Year
  Sex: Male

DRUGS (3)
  1. HAEGARDA [Suspect]
     Active Substance: HUMAN C1-ESTERASE INHIBITOR
     Indication: Hereditary angioedema
     Dosage: 7400 INTERNATIONAL UNIT, BIW
     Route: 058
     Dates: start: 20210518
  2. HAEGARDA [Suspect]
     Active Substance: HUMAN C1-ESTERASE INHIBITOR
     Indication: Prophylaxis
     Dosage: 7400 INTERNATIONAL UNIT, BIW
     Route: 058
     Dates: start: 20210517
  3. HAEGARDA [Suspect]
     Active Substance: HUMAN C1-ESTERASE INHIBITOR
     Dosage: 7400 INTERNATIONAL UNIT, BIW
     Route: 058
     Dates: start: 202105

REACTIONS (17)
  - Hereditary angioedema [Unknown]
  - No adverse event [Unknown]
  - Product dose omission issue [Unknown]
  - Product dose omission in error [Unknown]
  - Hereditary angioedema [Unknown]
  - Product dose omission in error [Unknown]
  - Hereditary angioedema [Unknown]
  - Product dose omission in error [Unknown]
  - Hereditary angioedema [Unknown]
  - Product dose omission in error [Unknown]
  - Weight decreased [Unknown]
  - Stress [Unknown]
  - Weight increased [Unknown]
  - Hereditary angioedema [Recovered/Resolved]
  - Hereditary angioedema [Unknown]
  - Hereditary angioedema [Unknown]
  - Weight increased [Unknown]

NARRATIVE: CASE EVENT DATE: 20220901
